FAERS Safety Report 16970594 (Version 1)
Quarter: 2019Q4

REPORT INFORMATION
  Report Type: Spontaneous
  Country: US (occurrence: US)
  Receive Date: 20190912
  Receipt Date: 20190912
  Transmission Date: 20200122
  Serious: Yes (Other)
  Sender: FDA-Public Use
  Company Number: None

PATIENT
  Age: 21 Year
  Sex: Female
  Weight: 52.16 kg

DRUGS (2)
  1. METHYLPHENIDATE 36MG [Suspect]
     Active Substance: METHYLPHENIDATE
     Indication: ATTENTION DEFICIT/HYPERACTIVITY DISORDER
     Route: 048
     Dates: start: 20171218, end: 201802
  2. METHYLPHENIDATE 54MG [Suspect]
     Active Substance: METHYLPHENIDATE
     Indication: ATTENTION DEFICIT/HYPERACTIVITY DISORDER
     Route: 048
     Dates: start: 20171218, end: 201802

REACTIONS (7)
  - Stress [None]
  - Disturbance in attention [None]
  - Cognitive disorder [None]
  - Feeling abnormal [None]
  - Product physical issue [None]
  - Emotional disorder [None]
  - Product substitution issue [None]

NARRATIVE: CASE EVENT DATE: 20180205
